FAERS Safety Report 8808362 (Version 1)
Quarter: 2012Q4

REPORT INFORMATION
  Report Type: Spontaneous
  Country: US (occurrence: None)
  Receive Date: 20120919
  Receipt Date: 20120919
  Transmission Date: 20130627
  Serious: Yes (Other)
  Sender: FDA-Public Use
  Company Number: FK201202675

PATIENT
  Age: 69 Year
  Sex: Female

DRUGS (2)
  1. CYTARABINE [Suspect]
  2. IDARUBICIN [Concomitant]

REACTIONS (2)
  - Cardiac tamponade [None]
  - Cardiotoxicity [None]
